FAERS Safety Report 13747038 (Version 1)
Quarter: 2017Q3

REPORT INFORMATION
  Report Type: Spontaneous
  Country: US (occurrence: US)
  Receive Date: 20170712
  Receipt Date: 20170712
  Transmission Date: 20171127
  Serious: Yes (Other)
  Sender: FDA-Public Use
  Company Number: US-MYLANLABS-2017M1040925

PATIENT

DRUGS (3)
  1. MIDAZOLAM [Suspect]
     Active Substance: MIDAZOLAM HYDROCHLORIDE
     Indication: SEDATION
     Dosage: 2MG
     Route: 041
  2. MIRTAZAPINE. [Concomitant]
     Active Substance: MIRTAZAPINE
     Indication: DEPRESSION
     Dosage: EVERY NIGHT
     Route: 065
  3. KETAMINE [Suspect]
     Active Substance: KETAMINE
     Indication: DEPRESSION
     Dosage: 0.5 MG/KG; OVER 40 MIN
     Route: 041

REACTIONS (1)
  - Acute respiratory failure [Recovered/Resolved]
